FAERS Safety Report 5517605-7 (Version None)
Quarter: 2007Q4

REPORT INFORMATION
  Report Type: 
  Country: None (occurrence: None)
  Receive Date: 20071114
  Receipt Date: 20071102
  Transmission Date: 20080405
  Serious: Yes (Other)
  Sender: FDA-Public Use
  Company Number: US-PFIZER INC-2007093289

PATIENT
  Sex: Female
  Weight: 84.1 kg

DRUGS (2)
  1. LYRICA [Suspect]
     Indication: NEURALGIA
  2. ACTOS [Concomitant]
     Indication: DIABETES MELLITUS

REACTIONS (4)
  - COLECTOMY [None]
  - CONSTIPATION [None]
  - DIARRHOEA [None]
  - WEIGHT DECREASED [None]
